FAERS Safety Report 19823040 (Version 1)
Quarter: 2021Q3

REPORT INFORMATION
  Report Type: Spontaneous
  Country: BR (occurrence: BR)
  Receive Date: 20210913
  Receipt Date: 20210913
  Transmission Date: 20211014
  Serious: Yes (Other)
  Sender: FDA-Public Use
  Company Number: BR-PFIZER INC-202101133669

PATIENT
  Sex: Female

DRUGS (1)
  1. DIABINESE [Suspect]
     Active Substance: CHLORPROPAMIDE
     Indication: DIABETES INSIPIDUS
     Dosage: UNK

REACTIONS (2)
  - Diabetic coma [Unknown]
  - Off label use [Unknown]
